FAERS Safety Report 15571316 (Version 8)
Quarter: 2020Q4

REPORT INFORMATION
  Report Type: Spontaneous
  Country: FR (occurrence: FR)
  Receive Date: 20181031
  Receipt Date: 20201214
  Transmission Date: 20210113
  Serious: Yes (Hospitalization, Disabling, Other)
  Sender: FDA-Public Use
  Company Number: FR-ALEXION PHARMACEUTICALS INC.-A201814293

PATIENT
  Age: 53 Year
  Sex: Female
  Weight: 50 kg

DRUGS (7)
  1. STRENSIQ [Suspect]
     Active Substance: ASFOTASE ALFA
     Dosage: 80 MG, QW
     Route: 065
  2. STRENSIQ [Suspect]
     Active Substance: ASFOTASE ALFA
     Dosage: UNK
     Route: 065
  3. STRENSIQ [Suspect]
     Active Substance: ASFOTASE ALFA
     Dosage: 80 MG, SINGLE
     Route: 065
     Dates: start: 201811
  4. STRENSIQ [Suspect]
     Active Substance: ASFOTASE ALFA
     Dosage: UNK, ONE INJECTION EVERY 3 WEEKS
     Route: 065
     Dates: start: 201811
  5. STRENSIQ [Suspect]
     Active Substance: ASFOTASE ALFA
     Dosage: 98MG THREE TIMES PER WEEK THEN 80 MG/WEEK SINCE AN UNSPECIFIED DATE
     Route: 065
     Dates: start: 201609, end: 201810
  6. STRENSIQ [Suspect]
     Active Substance: ASFOTASE ALFA
     Indication: HYPOPHOSPHATASIA
     Dosage: 6 MG/KG, QW
     Route: 065
  7. STRENSIQ [Suspect]
     Active Substance: ASFOTASE ALFA
     Dosage: 1 MG/KG, QD
     Route: 065

REACTIONS (6)
  - Spinal cord compression [Recovered/Resolved]
  - Condition aggravated [Recovered/Resolved]
  - Spinal ligament ossification [Recovered/Resolved]
  - Inappropriate schedule of product administration [Not Recovered/Not Resolved]
  - Cervical spinal stenosis [Not Recovered/Not Resolved]
  - Quadriparesis [Recovered/Resolved]

NARRATIVE: CASE EVENT DATE: 201703
